FAERS Safety Report 4919556-5 (Version None)
Quarter: 2006Q1

REPORT INFORMATION
  Report Type: 
  Country: None (occurrence: None)
  Receive Date: 20060222
  Receipt Date: 20051019
  Transmission Date: 20060701
  Serious: Yes (Hospitalization, Disabling)
  Sender: FDA-Public Use
  Company Number: US-MERCK-0510USA08295

PATIENT
  Age: 56 Year
  Sex: Male
  Weight: 106 kg

DRUGS (21)
  1. NORVASC [Concomitant]
     Indication: CARDIAC DISORDER
     Route: 065
  2. CELEBREX [Concomitant]
     Route: 065
     Dates: start: 20000229, end: 20020321
  3. METHYLPREDNISOLONE [Concomitant]
     Indication: PAIN
     Route: 065
  4. NABUMETONE [Concomitant]
     Indication: PAIN
     Route: 065
     Dates: end: 20050901
  5. NEURONTIN [Concomitant]
     Route: 065
     Dates: start: 20000201, end: 20000901
  6. NORVASC [Concomitant]
     Route: 048
     Dates: end: 20031031
  7. TYLENOL [Concomitant]
     Indication: PAIN
     Route: 065
     Dates: start: 20000101
  8. ASPIRIN [Concomitant]
     Indication: PROPHYLAXIS
     Route: 065
     Dates: start: 20021101
  9. CLOTRIMAZOLE [Concomitant]
     Route: 065
  10. LOTREL [Concomitant]
     Indication: HYPERTENSION
     Route: 065
  11. PLAVIX [Concomitant]
     Indication: CARDIAC DISORDER
     Route: 065
     Dates: start: 20010509
  12. TRAMADOLOR [Concomitant]
     Indication: PAIN
     Route: 065
  13. VIAGRA [Concomitant]
     Indication: ERECTILE DYSFUNCTION
     Route: 065
  14. OXYCODONE [Concomitant]
     Route: 065
     Dates: start: 20030905, end: 20040901
  15. PROPOXYPHENE HYDROCHLORIDE [Concomitant]
     Indication: PAIN
     Route: 065
  16. HYDROCODONE HYDROCHLORIDE [Concomitant]
     Indication: PAIN
     Route: 065
     Dates: start: 20010531, end: 20040201
  17. ADVIL [Concomitant]
     Indication: PAIN
     Route: 065
     Dates: start: 20000901
  18. VIOXX [Suspect]
     Indication: ARTHRITIS
     Route: 048
     Dates: start: 20001205, end: 20031031
  19. VIOXX [Suspect]
     Route: 048
     Dates: start: 20001205, end: 20031031
  20. VIOXX [Suspect]
     Route: 048
     Dates: start: 20001205, end: 20031031
  21. VIOXX [Suspect]
     Route: 048
     Dates: start: 20001205, end: 20031031

REACTIONS (7)
  - CEREBROVASCULAR ACCIDENT [None]
  - DIABETES MELLITUS [None]
  - HAEMORRHAGE [None]
  - MENISCUS LESION [None]
  - MYOCARDIAL INFARCTION [None]
  - PRESCRIBED OVERDOSE [None]
  - THROMBOSIS [None]
